FAERS Safety Report 21224208 (Version 2)
Quarter: 2022Q4

REPORT INFORMATION
  Report Type: Spontaneous
  Country: US (occurrence: US)
  Receive Date: 20220817
  Receipt Date: 20221012
  Transmission Date: 20230113
  Serious: No
  Sender: FDA-Public Use
  Company Number: US-SA-SAC20220812001849

PATIENT
  Sex: Female

DRUGS (34)
  1. AUBAGIO [Suspect]
     Active Substance: TERIFLUNOMIDE
     Indication: Multiple sclerosis
     Dosage: 14 MG, QD
     Route: 048
     Dates: start: 201811
  2. SODIUM CHLORIDE [Concomitant]
     Active Substance: SODIUM CHLORIDE
  3. COPPER;ZINC [Concomitant]
  4. MOVE FREE ULTRA TRIPLE ACTION [Concomitant]
  5. ACETAMINOPHEN [Concomitant]
     Active Substance: ACETAMINOPHEN
  6. DIPHENHYDRAMINE [Concomitant]
     Active Substance: DIPHENHYDRAMINE
  7. HEPARIN [Concomitant]
     Active Substance: HEPARIN SODIUM
  8. LIDOCAINE [Concomitant]
     Active Substance: LIDOCAINE
  9. METHYLPREDNISOLONE [Concomitant]
     Active Substance: METHYLPREDNISOLONE
  10. OCTAGAM IMMUNE GLOBULIN (HUMAN) [Concomitant]
     Active Substance: HUMAN IMMUNOGLOBULIN G
  11. VENLAFAXINE HCL [Concomitant]
     Active Substance: VENLAFAXINE HYDROCHLORIDE
  12. BACLOFEN [Concomitant]
     Active Substance: BACLOFEN
  13. GABAPENTIN [Concomitant]
     Active Substance: GABAPENTIN
  14. ONDANSETRON HCL [Concomitant]
     Active Substance: ONDANSETRON HYDROCHLORIDE
  15. VITAMIN D2 [Concomitant]
     Active Substance: ERGOCALCIFEROL
  16. MOVANTIK [Concomitant]
     Active Substance: NALOXEGOL OXALATE
  17. SALAGEN [Concomitant]
     Active Substance: PILOCARPINE HYDROCHLORIDE
  18. PERCOCET [Concomitant]
     Active Substance: ACETAMINOPHEN\OXYCODONE HYDROCHLORIDE
  19. HYDRALAZINE HCL [Concomitant]
     Active Substance: HYDRALAZINE HYDROCHLORIDE
  20. ELETRIPTAN [Concomitant]
     Active Substance: ELETRIPTAN
  21. DIAZEPAM [Concomitant]
     Active Substance: DIAZEPAM
  22. CLOTRIMAZOLE [Concomitant]
     Active Substance: CLOTRIMAZOLE
  23. BIOTIN [Concomitant]
     Active Substance: BIOTIN
  24. LIDODERM [Concomitant]
     Active Substance: LIDOCAINE
  25. MYRBETRIQ [Concomitant]
     Active Substance: MIRABEGRON
  26. CLARITIN-D NOS [Concomitant]
     Active Substance: LORATADINE\PSEUDOEPHEDRINE SULFATE
  27. .ALPHA.-TOCOPHEROL [Concomitant]
     Active Substance: .ALPHA.-TOCOPHEROL
  28. VITAMIN A [Concomitant]
     Active Substance: VITAMIN A
  29. OMEGA-3 FISH OIL +VITAMIN D [Concomitant]
  30. SODIUM CHLORIDE [Concomitant]
     Active Substance: SODIUM CHLORIDE
  31. VITAMIN B COMPLEX [Concomitant]
     Active Substance: CYANOCOBALAMIN\DEXPANTHENOL\NIACINAMIDE\PYRIDOXINE HYDROCHLORIDE\RIBOFLAVIN 5^-PHOSPHATE SODIUM\THIA
  32. PROBIOTICS NOS [Concomitant]
     Active Substance: PROBIOTICS NOS
  33. POLYVINYL ALCOHOL\POVIDONE [Concomitant]
     Active Substance: POLYVINYL ALCOHOL\POVIDONE
  34. MAGNESIUM [Concomitant]
     Active Substance: MAGNESIUM

REACTIONS (3)
  - Migraine [Unknown]
  - Hypersensitivity [Unknown]
  - Headache [Unknown]
